FAERS Safety Report 4477624-9 (Version None)
Quarter: 2004Q4

REPORT INFORMATION
  Report Type: 
  Country: None (occurrence: None)
  Receive Date: 20041013
  Receipt Date: 20040923
  Transmission Date: 20050328
  Serious: Yes (Hospitalization)
  Sender: FDA-Public Use
  Company Number: EWC040940756

PATIENT
  Age: 73 Year
  Sex: Male
  Weight: 59 kg

DRUGS (8)
  1. GEMZAR [Suspect]
     Indication: NON-SMALL CELL LUNG CANCER
     Dosage: 1700 MG/M2/1 OTHER
     Route: 042
     Dates: start: 20040914
  2. TERAZOSIN HCL [Concomitant]
  3. RANITIDINE [Concomitant]
  4. MEDROXYPROGESTERONE ACETATE [Concomitant]
  5. SENOKOT (SENNA ALEXANDRINA FRUIT) [Concomitant]
  6. METOCLOPRAMIDE [Concomitant]
  7. MAGNESIUM OXIDE [Concomitant]
  8. ZOPICLONE (ZOPICLONE) [Concomitant]

REACTIONS (3)
  - FAECES DISCOLOURED [None]
  - GASTRITIS [None]
  - VOMITING [None]
